FAERS Safety Report 9139366 (Version 1)
Quarter: 2013Q1

REPORT INFORMATION
  Report Type: Spontaneous
  Country: ES (occurrence: ES)
  Receive Date: 20130305
  Receipt Date: 20130305
  Transmission Date: 20140127
  Serious: Yes (Hospitalization)
  Sender: FDA-Public Use
  Company Number: ES-PFIZER INC-2013073199

PATIENT
  Age: 60 Year
  Sex: Male

DRUGS (8)
  1. RAPAMUNE [Suspect]
     Indication: PROPHYLAXIS AGAINST TRANSPLANT REJECTION
     Dosage: 1 MG, 1X/DAY
     Route: 048
     Dates: start: 2012, end: 20130122
  2. CALCITRIOL [Concomitant]
     Dosage: 0.25 MG, 1X/DAY
     Route: 048
  3. OMEPRAZOL [Concomitant]
     Dosage: 20 MG, 1X/DAY
     Route: 048
  4. BISOPROLOL [Concomitant]
     Dosage: 5 MG, 2X/DAY
     Route: 048
  5. PREDNISONE [Concomitant]
     Dosage: 10 MG, 1X/DAY
     Route: 048
  6. FUROSEMIDE [Concomitant]
     Dosage: 40 MG, 2X/DAY
     Route: 048
  7. ROYEN [Concomitant]
     Dosage: 0.5 MG, 3X/DAY
     Route: 048
  8. SINTROM [Concomitant]
     Route: 048

REACTIONS (1)
  - Haemolytic anaemia [Recovered/Resolved]
